FAERS Safety Report 8431907-6 (Version None)
Quarter: 2012Q2

REPORT INFORMATION
  Report Type: 
  Country: None (occurrence: None)
  Receive Date: 20120613
  Receipt Date: 20120518
  Transmission Date: 20120825
  Serious: Yes (Death, Hospitalization, Other)
  Sender: FDA-Public Use
  Company Number: DE-CELGENEUS-062-50794-12050960

PATIENT
  Age: 76 Year
  Sex: Male
  Weight: 70 kg

DRUGS (8)
  1. VIDAZA [Suspect]
     Route: 058
     Dates: start: 20111227, end: 20111229
  2. DIPYRONE TAB [Concomitant]
     Route: 065
  3. TILIDIN [Concomitant]
     Route: 065
  4. VIDAZA [Suspect]
     Route: 058
     Dates: start: 20120123, end: 20120126
  5. VIDAZA [Suspect]
     Route: 058
     Dates: start: 20111122, end: 20111201
  6. VIDAZA [Suspect]
     Route: 058
     Dates: start: 20120305, end: 20120307
  7. LACTULOSE [Concomitant]
     Route: 065
  8. POLYETHYLENE GLYCOL [Concomitant]
     Route: 065

REACTIONS (8)
  - SKIN LESION [None]
  - ANAEMIA [None]
  - PAIN [None]
  - DEATH [None]
  - FALL [None]
  - GENERAL PHYSICAL HEALTH DETERIORATION [None]
  - LEUKOCYTOSIS [None]
  - THROMBOCYTOPENIA [None]
